FAERS Safety Report 6549794-X (Version None)
Quarter: 2010Q1

REPORT INFORMATION
  Report Type: 
  Country: None (occurrence: None)
  Receive Date: 20100119
  Receipt Date: 20100104
  Transmission Date: 20100710
  Serious: Yes (Death, Hospitalization)
  Sender: FDA-Public Use
  Company Number: 2009AC000122

PATIENT
  Age: 74 Year
  Sex: Female

DRUGS (25)
  1. DIGOXIN [Suspect]
     Dosage: 0.125 MG; QD; PO
     Route: 048
     Dates: start: 20070501
  2. ATENOLOL [Concomitant]
  3. IBUPROFEN [Concomitant]
  4. COUMADIN [Concomitant]
  5. CARDIZEM [Concomitant]
  6. LOPRESSOR [Concomitant]
  7. AMIODARONE [Concomitant]
  8. AVALIDE [Concomitant]
  9. CARTIA XT [Concomitant]
  10. AMIODARONE [Concomitant]
  11. ATENOL [Concomitant]
  12. AVALIDE [Concomitant]
  13. COUMADIN [Concomitant]
  14. IBUPROFEN [Concomitant]
  15. ATENOLOL [Concomitant]
  16. METOPROLOL [Concomitant]
  17. CARDIZEM [Concomitant]
  18. BACTRIM [Concomitant]
  19. LOPRESSOR [Concomitant]
  20. AMIODARONE [Concomitant]
  21. DARVOCET [Concomitant]
  22. FORTAZ [Concomitant]
  23. DIOVAN [Concomitant]
  24. AMOXICILLIN [Concomitant]
  25. FEXOFENADINE [Concomitant]

REACTIONS (26)
  - AGITATION [None]
  - ASTHENIA [None]
  - ATRIAL FIBRILLATION [None]
  - BACK PAIN [None]
  - BLOOD POTASSIUM INCREASED [None]
  - CARDIAC FAILURE CONGESTIVE [None]
  - CARDIOMEGALY [None]
  - CONFUSIONAL STATE [None]
  - DEHYDRATION [None]
  - ECONOMIC PROBLEM [None]
  - FALL [None]
  - HEAD INJURY [None]
  - HEART RATE IRREGULAR [None]
  - HYPERKALAEMIA [None]
  - HYPERTENSION [None]
  - HYPONATRAEMIA [None]
  - HYPOTENSION [None]
  - LOSS OF CONSCIOUSNESS [None]
  - METABOLIC ACIDOSIS [None]
  - MULTIPLE INJURIES [None]
  - PLEURAL EFFUSION [None]
  - RENAL FAILURE ACUTE [None]
  - SKULL FRACTURE [None]
  - SUBDURAL HAEMATOMA [None]
  - URINARY TRACT INFECTION [None]
  - VISUAL IMPAIRMENT [None]
